FAERS Safety Report 7474791-X (Version None)
Quarter: 2011Q2

REPORT INFORMATION
  Report Type: 
  Country: None (occurrence: None)
  Receive Date: 20110512
  Receipt Date: 20110502
  Transmission Date: 20111010
  Serious: Yes (Hospitalization, Other)
  Sender: FDA-Public Use
  Company Number: US-BAYER-201026580NA

PATIENT
  Age: 28 Year
  Sex: Female
  Weight: 90.909 kg

DRUGS (6)
  1. HYDROCODONE BITARTRATE AND ACETAMINOPHEN [Concomitant]
     Dosage: 5-500 TAB
     Dates: start: 20070312
  2. PROMETHAZINE [Concomitant]
     Dates: start: 20070312
  3. NITROFURANTOIN [Concomitant]
     Dates: start: 20070312
  4. PROGESTIN MIRENA IUD [Concomitant]
  5. YASMIN [Suspect]
     Indication: ORAL CONTRACEPTION
     Route: 048
     Dates: start: 20070101, end: 20070401
  6. LORTAB [Concomitant]
     Indication: PAIN

REACTIONS (2)
  - THROMBOSIS [None]
  - DEEP VEIN THROMBOSIS [None]
